FAERS Safety Report 4830347-6 (Version None)
Quarter: 2005Q4

REPORT INFORMATION
  Report Type: 
  Country: None (occurrence: None)
  Receive Date: 20051114
  Receipt Date: 20051028
  Transmission Date: 20060501
  Serious: Yes (Other)
  Sender: FDA-Public Use
  Company Number: US_0411107616

PATIENT
  Age: 64 Year
  Sex: Male
  Weight: 73 kg

DRUGS (21)
  1. ZYPREXA [Suspect]
     Indication: BIPOLAR DISORDER
     Dosage: 25 MG DAY
     Dates: start: 20011001
  2. HUMALOG MIX 75/25 [Concomitant]
  3. SEROQUEL [Concomitant]
  4. SYMBYAK [Concomitant]
  5. APO-DIVALPROEX (VALPROATE SEMISODIUM) [Concomitant]
  6. GLUCOPHAGE [Concomitant]
  7. GLYSET (MIGLITOL) [Concomitant]
  8. STARLIX [Concomitant]
  9. ACTOS [Concomitant]
  10. AVANDIA [Concomitant]
  11. ZOLOFT [Concomitant]
  12. SONATA [Concomitant]
  13. MIRALAX [Concomitant]
  14. TRICOR [Concomitant]
  15. ALTACE (RAMIPRIL DURA) [Concomitant]
  16. PLETAL [Concomitant]
  17. PROPRANOLOL [Concomitant]
  18. LISINOPRIL [Concomitant]
  19. PRANDIN (DEFLAZACORT) [Concomitant]
  20. THIOTHIXENE [Concomitant]
  21. AMBIEN [Concomitant]

REACTIONS (24)
  - ABDOMINAL PAIN [None]
  - ANOXIA [None]
  - BLOOD CREATINE PHOSPHOKINASE INCREASED [None]
  - BLOOD GLUCOSE INCREASED [None]
  - CARDIO-RESPIRATORY ARREST [None]
  - CATARACT OPERATION [None]
  - CONSTIPATION [None]
  - ENCEPHALOPATHY [None]
  - GASTROOESOPHAGEAL REFLUX DISEASE [None]
  - HAEMATOCRIT DECREASED [None]
  - HAEMOGLOBIN DECREASED [None]
  - HALLUCINATION [None]
  - HIATUS HERNIA [None]
  - HYPOXIA [None]
  - INCONTINENCE [None]
  - LYMPHOCYTE PERCENTAGE DECREASED [None]
  - PRESCRIBED OVERDOSE [None]
  - PSYCHOTIC DISORDER [None]
  - RECTAL HAEMORRHAGE [None]
  - RED BLOOD CELL COUNT DECREASED [None]
  - THINKING ABNORMAL [None]
  - TREATMENT NONCOMPLIANCE [None]
  - URINARY TRACT INFECTION [None]
  - WEIGHT INCREASED [None]
